FAERS Safety Report 9536259 (Version 1)
Quarter: 2013Q2

REPORT INFORMATION
  Report Type: Spontaneous
  Country: US (occurrence: None)
  Receive Date: 20130507
  Receipt Date: 20130507
  Transmission Date: 20140414
  Serious: No
  Sender: FDA-Public Use
  Company Number: PHEH2013US000596

PATIENT
  Age: 23 Year
  Sex: Male

DRUGS (4)
  1. AFINITOR (RAD) [Suspect]
     Indication: TUBEROUS SCLEROSIS
     Route: 048
     Dates: start: 20121015
  2. REMERON (MIRTAZAPINE) [Concomitant]
  3. ONFI (CLOBAZAM) [Concomitant]
  4. SABRIL (VIGABATRIN) [Concomitant]

REACTIONS (3)
  - Bronchitis [None]
  - Pyrexia [None]
  - Blood triglycerides increased [None]
